FAERS Safety Report 5536553-X (Version None)
Quarter: 2007Q4

REPORT INFORMATION
  Report Type: 
  Country: None (occurrence: None)
  Receive Date: 20071204
  Receipt Date: 20071119
  Transmission Date: 20080405
  Serious: Yes (Hospitalization)
  Sender: FDA-Public Use
  Company Number: 230037M07DEU

PATIENT
  Age: 18 Year
  Sex: Female
  Weight: 55 kg

DRUGS (1)
  1. REBIF [Suspect]
     Indication: ENCEPHALITIS
     Dosage: 22 MCG, 1 IN 1 DAYS, SUBCUTANEOUS
     Route: 058
     Dates: start: 20070301, end: 20071112

REACTIONS (1)
  - INJECTION SITE NECROSIS [None]
